FAERS Safety Report 12176112 (Version 2)
Quarter: 2018Q1

REPORT INFORMATION
  Report Type: Spontaneous
  Country: TW (occurrence: TW)
  Receive Date: 20160314
  Receipt Date: 20180319
  Transmission Date: 20180508
  Serious: Yes (Hospitalization, Other)
  Sender: FDA-Public Use
  Company Number: CHPA2016TW002996

PATIENT
  Age: 31 Month
  Sex: Male

DRUGS (6)
  1. PARACETAMOL [Interacting]
     Active Substance: ACETAMINOPHEN
     Indication: OROPHARYNGEAL PAIN
  2. CEPHALEXIN. [Interacting]
     Active Substance: CEPHALEXIN
     Indication: PYREXIA
  3. PARACETAMOL [Interacting]
     Active Substance: ACETAMINOPHEN
     Indication: PYREXIA
     Dosage: UNK
     Route: 065
  4. CEPHALEXIN. [Interacting]
     Active Substance: CEPHALEXIN
     Indication: OROPHARYNGEAL PAIN
     Dosage: UNK
     Route: 065
  5. DICLOFENAC [Suspect]
     Active Substance: DICLOFENAC
     Indication: PYREXIA
     Dosage: 1.6 MG KG^-1 DAY^-1
     Route: 065
  6. CEFTRIAXONE. [Interacting]
     Active Substance: CEFTRIAXONE
     Indication: PYREXIA
     Dosage: UNK
     Route: 042

REACTIONS (5)
  - Large intestine perforation [Recovered/Resolved]
  - Abdominal distension [Recovered/Resolved]
  - Abdominal tenderness [Recovered/Resolved]
  - Drug interaction [Recovering/Resolving]
  - Abdominal pain [Recovered/Resolved]
